FAERS Safety Report 9709440 (Version 1)
Quarter: 2013Q4

REPORT INFORMATION
  Report Type: Spontaneous
  Country: US (occurrence: US)
  Receive Date: 20131126
  Receipt Date: 20131126
  Transmission Date: 20140711
  Serious: No
  Sender: FDA-Public Use
  Company Number: US-009507513-1311USA010055

PATIENT
  Sex: Female
  Weight: 89.34 kg

DRUGS (1)
  1. IMPLANON [Suspect]
     Indication: CONTRACEPTION
     Dosage: DOSE/FREQUENCY: EVERY 3 YEARS, 1 ROD
     Route: 059
     Dates: start: 20111228

REACTIONS (4)
  - Menstruation irregular [Unknown]
  - Menorrhagia [Unknown]
  - Menstruation delayed [Unknown]
  - Nausea [Unknown]
